FAERS Safety Report 10153427 (Version 1)
Quarter: 2014Q2

REPORT INFORMATION
  Report Type: Spontaneous
  Country: US (occurrence: US)
  Receive Date: 20140505
  Receipt Date: 20140505
  Transmission Date: 20141212
  Serious: No
  Sender: FDA-Public Use
  Company Number: US-ASTRAZENECA-2014SE13480

PATIENT
  Sex: Male

DRUGS (4)
  1. PRILOSEC [Suspect]
     Indication: BARRETT^S OESOPHAGUS
     Route: 048
  2. PRILOSEC [Suspect]
     Indication: BARRETT^S OESOPHAGUS
     Route: 048
  3. CRESTOR [Suspect]
     Indication: BLOOD CHOLESTEROL ABNORMAL
     Route: 048
  4. NEXIUM [Suspect]
     Indication: BARRETT^S OESOPHAGUS
     Route: 048
     Dates: start: 2009

REACTIONS (4)
  - Ulcer [Recovering/Resolving]
  - Intentional product misuse [Recovered/Resolved]
  - Intentional product misuse [Unknown]
  - Drug ineffective [Unknown]
